FAERS Safety Report 8192309-3 (Version None)
Quarter: 2012Q1

REPORT INFORMATION
  Report Type: 
  Country: None (occurrence: None)
  Receive Date: 20120307
  Receipt Date: 20110525
  Transmission Date: 20120608
  Serious: Yes (Other)
  Sender: FDA-Public Use
  Company Number: PHHY2011JP115742

PATIENT
  Age: 11 Year
  Sex: Male

DRUGS (3)
  1. MYSTAN [Concomitant]
     Indication: EPILEPSY
     Route: 048
  2. CONCERTA [Concomitant]
  3. TEGRETOL [Suspect]
     Indication: EPILEPSY
     Route: 048

REACTIONS (1)
  - ATTENTION DEFICIT/HYPERACTIVITY DISORDER [None]
